FAERS Safety Report 18027946 (Version 2)
Quarter: 2020Q3

REPORT INFORMATION
  Report Type: Report from Study
  Country: IL (occurrence: IL)
  Receive Date: 20200715
  Receipt Date: 20200716
  Transmission Date: 20201103
  Serious: Yes (Hospitalization)
  Sender: FDA-Public Use
  Company Number: IL-JNJFOC-20200613537

PATIENT
  Age: 62 Year
  Sex: Female

DRUGS (7)
  1. SIMPONI [Suspect]
     Active Substance: GOLIMUMAB
     Indication: ANKYLOSING SPONDYLITIS
     Route: 058
     Dates: start: 20161206
  2. CARDILOL                           /00030002/ [Concomitant]
  3. LOSARDEX [Concomitant]
     Active Substance: LOSARTAN POTASSIUM
  4. SIMPONI [Suspect]
     Active Substance: GOLIMUMAB
  5. CLOPIDOGREL [Concomitant]
     Active Substance: CLOPIDOGREL BISULFATE
  6. ATOZET [Concomitant]
     Active Substance: ATORVASTATIN CALCIUM\EZETIMIBE
  7. ASPRIN [Concomitant]
     Active Substance: ASPIRIN

REACTIONS (4)
  - Herpes zoster [Unknown]
  - Blood cholesterol increased [Unknown]
  - Therapeutic product effect incomplete [Recovering/Resolving]
  - Coronary artery occlusion [Not Recovered/Not Resolved]

NARRATIVE: CASE EVENT DATE: 20200527
